FAERS Safety Report 15299722 (Version 1)
Quarter: 2018Q3

REPORT INFORMATION
  Report Type: Spontaneous
  Country: US (occurrence: US)
  Receive Date: 20180816
  Receipt Date: 20180816
  Transmission Date: 20181010
  Serious: Yes (Hospitalization, Other)
  Sender: FDA-Public Use
  Company Number: US-ARALEZ PHARMACEUTICALS R+D INC.-2018-ARA-002048

PATIENT
  Age: 54 Year
  Sex: Male
  Weight: 90.7 kg

DRUGS (12)
  1. TOPROL XL [Suspect]
     Active Substance: METOPROLOL SUCCINATE
     Indication: PRODUCT USED FOR UNKNOWN INDICATION
     Dosage: 50 MG, BID
     Route: 065
  2. ELIQUIS [Concomitant]
     Active Substance: APIXABAN
  3. NORVASC [Concomitant]
     Active Substance: AMLODIPINE BESYLATE
  4. VISTARIL                           /00058402/ [Concomitant]
     Active Substance: HYDROXYZINE HYDROCHLORIDE
  5. CIMETIDINE [Concomitant]
     Active Substance: CIMETIDINE
  6. PLAVIX [Concomitant]
     Active Substance: CLOPIDOGREL BISULFATE
  7. PROTONIX                           /00661201/ [Concomitant]
     Active Substance: OMEPRAZOLE
  8. LYRICA [Concomitant]
     Active Substance: PREGABALIN
  9. PRAVASTATIN. [Concomitant]
     Active Substance: PRAVASTATIN
  10. ASPIRIN                            /00002701/ [Concomitant]
     Active Substance: ASPIRIN
  11. MAXZIDE [Concomitant]
     Active Substance: HYDROCHLOROTHIAZIDE\TRIAMTERENE
  12. TOPAMAX [Concomitant]
     Active Substance: TOPIRAMATE

REACTIONS (4)
  - Myocardial infarction [Unknown]
  - Troponin increased [Unknown]
  - Inappropriate schedule of drug administration [Unknown]
  - Heart rate decreased [Unknown]

NARRATIVE: CASE EVENT DATE: 201803
